FAERS Safety Report 8399005-8 (Version None)
Quarter: 2012Q2

REPORT INFORMATION
  Report Type: 
  Country: None (occurrence: None)
  Receive Date: 20120531
  Receipt Date: 20120530
  Transmission Date: 20120825
  Serious: Yes (Other)
  Sender: FDA-Public Use
  Company Number: US-BAYER-2012-039847

PATIENT
  Age: 64 Year
  Sex: Female
  Weight: 134.2 kg

DRUGS (4)
  1. MIRENA [Suspect]
     Indication: DYSFUNCTIONAL UTERINE BLEEDING
     Dosage: 52 MG, UNK
     Route: 015
     Dates: start: 20120201, end: 20120517
  2. ADVAIR DISKUS 100/50 [Concomitant]
  3. FUROSEMIDE [Concomitant]
  4. LOVENOX [Concomitant]

REACTIONS (1)
  - DEPRESSION SUICIDAL [None]
